FAERS Safety Report 4649848-9 (Version None)
Quarter: 2005Q2

REPORT INFORMATION
  Report Type: 
  Country: None (occurrence: None)
  Receive Date: 20050428
  Receipt Date: 20050415
  Transmission Date: 20051028
  Serious: Yes (Hospitalization)
  Sender: FDA-Public Use
  Company Number: 2005061658

PATIENT
  Age: 81 Year
  Sex: Male

DRUGS (7)
  1. SULPERAZON (SULBACTAM, CEFOPERAZONE) [Suspect]
     Indication: ILL-DEFINED DISORDER
     Dosage: INTRAVENOUS
     Route: 042
     Dates: start: 20050219
  2. FAMOTIDINE [Suspect]
     Indication: ILL-DEFINED DISORDER
     Dosage: INTRAVENOUS
     Route: 042
  3. GLUCAGON [Concomitant]
  4. INSULIN [Concomitant]
  5. URSODIOL [Concomitant]
  6. STRONG NEO-MINOPHAGEN C (AMINOACETIC  ACID, CYSTEINE, GLYCYRRHIZIC ACI [Concomitant]
  7. PHENOBARBITAL TAB [Concomitant]

REACTIONS (1)
  - JAUNDICE [None]
